FAERS Safety Report 5909056-8 (Version None)
Quarter: 2008Q4

REPORT INFORMATION
  Report Type: 
  Country: None (occurrence: None)
  Receive Date: 20081006
  Receipt Date: 20080924
  Transmission Date: 20090506
  Serious: Yes (Hospitalization)
  Sender: FDA-Public Use
  Company Number: IL-WYE-H06251108

PATIENT
  Sex: Male

DRUGS (2)
  1. RAPAMUNE [Suspect]
     Indication: PROPHYLAXIS AGAINST TRANSPLANT REJECTION
     Route: 048
  2. PROGRAF [Concomitant]
     Dosage: UNKNOWN

REACTIONS (2)
  - DIARRHOEA [None]
  - VOMITING [None]
